FAERS Safety Report 5408880-8 (Version None)
Quarter: 2007Q3

REPORT INFORMATION
  Report Type: 
  Country: None (occurrence: None)
  Receive Date: 20070808
  Receipt Date: 20070802
  Transmission Date: 20080115
  Serious: No
  Sender: FDA-Public Use
  Company Number: US-PFIZER INC-2007056715

PATIENT
  Sex: Male

DRUGS (1)
  1. AZITHROMYCIN [Suspect]

REACTIONS (1)
  - NO ADVERSE REACTION [None]
